FAERS Safety Report 16122417 (Version 1)
Quarter: 2019Q2

REPORT INFORMATION
  Report Type: Spontaneous
  Country: US (occurrence: US)
  Receive Date: 20190326
  Receipt Date: 20190326
  Transmission Date: 20190711
  Serious: Yes (Death)
  Sender: FDA-Public Use
  Company Number: None

PATIENT
  Age: 56 Year
  Sex: Female

DRUGS (19)
  1. ESTRADIOL. [Concomitant]
     Active Substance: ESTRADIOL
  2. HYDROCO APAP [Concomitant]
  3. MORPHINE [Concomitant]
     Active Substance: MORPHINE
  4. METOCLOPRAM [Concomitant]
     Active Substance: METOCLOPRAMIDE
  5. PROCHLORPER [Concomitant]
  6. BACLOFEN. [Concomitant]
     Active Substance: BACLOFEN
  7. AZITHROMYCIN ANHYDROUS. [Concomitant]
     Active Substance: AZITHROMYCIN ANHYDROUS
  8. CLARITHROMYC [Concomitant]
  9. TIZANIDINE. [Concomitant]
     Active Substance: TIZANIDINE
  10. KISQALI [Suspect]
     Active Substance: RIBOCICLIB
     Indication: BREAST CANCER FEMALE
     Route: 048
     Dates: start: 20190207
  11. BACLOFEN. [Concomitant]
     Active Substance: BACLOFEN
  12. DEXAMETHASON [Concomitant]
     Active Substance: DEXAMETHASONE
  13. ONDANSETRON [Concomitant]
     Active Substance: ONDANSETRON
  14. FENTANYL. [Concomitant]
     Active Substance: FENTANYL
  15. ESOMEPRA MAG [Concomitant]
  16. PROMETHAZINE [Concomitant]
     Active Substance: PROMETHAZINE\PROMETHAZINE HYDROCHLORIDE
  17. SUCRALFATE. [Concomitant]
     Active Substance: SUCRALFATE
  18. TRIAMCINOLON LOT [Concomitant]
  19. OSELTAMIVIR [Concomitant]
     Active Substance: OSELTAMIVIR

REACTIONS (1)
  - Death [None]

NARRATIVE: CASE EVENT DATE: 20190218
